FAERS Safety Report 7009825-X (Version None)
Quarter: 2010Q3

REPORT INFORMATION
  Report Type: 
  Country: None (occurrence: None)
  Receive Date: 20100923
  Receipt Date: 20100914
  Transmission Date: 20110219
  Serious: Yes (Hospitalization)
  Sender: FDA-Public Use
  Company Number: JP-AMGEN-QUU439319

PATIENT
  Sex: Female

DRUGS (3)
  1. ENBREL [Suspect]
     Indication: STILL'S DISEASE ADULT ONSET
     Dosage: UNSPECIFIED
     Route: 058
     Dates: end: 20100501
  2. ISCOTIN [Suspect]
     Indication: ANTIBIOTIC PROPHYLAXIS
     Dosage: UNSPECIFIED
     Route: 048
  3. METHOTREXATE [Suspect]
     Indication: STILL'S DISEASE ADULT ONSET
     Dosage: 12.5 MG
     Route: 048

REACTIONS (3)
  - ALANINE AMINOTRANSFERASE INCREASED [None]
  - ASPARTATE AMINOTRANSFERASE INCREASED [None]
  - LIVER DISORDER [None]
